FAERS Safety Report 9698720 (Version 1)
Quarter: 2013Q4

REPORT INFORMATION
  Report Type: Spontaneous
  Country: AU (occurrence: AU)
  Receive Date: 20131120
  Receipt Date: 20131120
  Transmission Date: 20140711
  Serious: Yes (Other)
  Sender: FDA-Public Use
  Company Number: PHHY2013AU132002

PATIENT
  Age: 8 Month
  Sex: 0

DRUGS (1)
  1. PARACETAMOL [Suspect]
     Indication: PYREXIA
     Dosage: 240 MG/KG, PER DAY

REACTIONS (3)
  - Drug-induced liver injury [Unknown]
  - Acute hepatic failure [Unknown]
  - Toxicity to various agents [Unknown]
